FAERS Safety Report 6866642-9 (Version None)
Quarter: 2010Q3

REPORT INFORMATION
  Report Type: 
  Country: None (occurrence: None)
  Receive Date: 20100722
  Receipt Date: 20100712
  Transmission Date: 20110219
  Serious: Yes (Disabling)
  Sender: FDA-Public Use
  Company Number: US-BAXTER-2010BH015041

PATIENT
  Age: 63 Year
  Sex: Male
  Weight: 76 kg

DRUGS (4)
  1. DIANEAL [Suspect]
     Indication: PERITONEAL DIALYSIS
     Route: 033
     Dates: start: 20100702
  2. DIANEAL [Suspect]
     Route: 033
     Dates: start: 20100524, end: 20100604
  3. EXTRANEAL [Suspect]
     Indication: PERITONEAL DIALYSIS
     Route: 033
     Dates: start: 20100702
  4. EXTRANEAL [Suspect]
     Route: 033
     Dates: start: 20100524, end: 20100604

REACTIONS (1)
  - INGUINAL HERNIA [None]
